FAERS Safety Report 10243013 (Version 3)
Quarter: 2014Q4

REPORT INFORMATION
  Report Type: Report from Study
  Country: CA (occurrence: CA)
  Receive Date: 20140618
  Receipt Date: 20141119
  Transmission Date: 20150528
  Serious: Yes (Hospitalization, Other)
  Sender: FDA-Public Use
  Company Number: CA-AMGEN-CANSP2014044219

PATIENT
  Age: 67 Year
  Sex: Female

DRUGS (5)
  1. CALCIUM VITAMIN D [Concomitant]
     Active Substance: CALCIUM\VITAMIN D
     Dosage: UNK
  2. FORTEO [Concomitant]
     Active Substance: TERIPARATIDE
  3. VITAMIN B12 [Concomitant]
     Active Substance: CYANOCOBALAMIN
     Dosage: UNK
  4. NEXIUM [Concomitant]
     Active Substance: ESOMEPRAZOLE MAGNESIUM
     Dosage: UNK
  5. PROLIA [Suspect]
     Active Substance: DENOSUMAB
     Indication: OSTEOPOROSIS POSTMENOPAUSAL
     Dosage: 60 MG, Q6MO
     Route: 058
     Dates: start: 20110503

REACTIONS (10)
  - Fracture [Unknown]
  - Mobility decreased [Unknown]
  - Activities of daily living impaired [Unknown]
  - Malaise [Unknown]
  - Spinal fracture [Recovering/Resolving]
  - Burning sensation [Not Recovered/Not Resolved]
  - Muscle spasms [Not Recovered/Not Resolved]
  - Pain [Not Recovered/Not Resolved]
  - Blood glucose decreased [Recovering/Resolving]
  - Fall [Unknown]

NARRATIVE: CASE EVENT DATE: 201311
